FAERS Safety Report 7803712-2 (Version None)
Quarter: 2011Q4

REPORT INFORMATION
  Report Type: 
  Country: None (occurrence: None)
  Receive Date: 20111010
  Receipt Date: 20110927
  Transmission Date: 20120403
  Serious: Yes (Other)
  Sender: FDA-Public Use
  Company Number: US-BIOGENIDEC-2011BI037552

PATIENT
  Age: 43 Year
  Sex: Female

DRUGS (1)
  1. AVONEX [Suspect]
     Indication: MULTIPLE SCLEROSIS
     Route: 030
     Dates: start: 20080404

REACTIONS (18)
  - CONVULSION [None]
  - PAIN [None]
  - FEELING HOT [None]
  - EYE DISORDER [None]
  - GAIT DISTURBANCE [None]
  - STRESS [None]
  - NASOPHARYNGITIS [None]
  - PALPITATIONS [None]
  - NAUSEA [None]
  - FEELING ABNORMAL [None]
  - FATIGUE [None]
  - HYPOAESTHESIA [None]
  - MUSCULOSKELETAL DISORDER [None]
  - INFLUENZA LIKE ILLNESS [None]
  - PAIN IN EXTREMITY [None]
  - DIARRHOEA [None]
  - DIZZINESS [None]
  - MALAISE [None]
